FAERS Safety Report 7375280-3 (Version None)
Quarter: 2011Q1

REPORT INFORMATION
  Report Type: 
  Country: None (occurrence: None)
  Receive Date: 20110315
  Receipt Date: 20110301
  Transmission Date: 20110831
  Serious: Yes (Hospitalization)
  Sender: FDA-Public Use
  Company Number: 2011SP000658

PATIENT
  Age: 91 Year
  Sex: Female

DRUGS (8)
  1. PRILOSEC [Concomitant]
  2. LASIX [Concomitant]
  3. METOPROLOL [Concomitant]
  4. XOPENEX [Suspect]
     Indication: ASTHMA
     Dosage: 0.63 MG/ML;PRN;INHALATION ; 0.63 MG/ML;Q6H;INHALATION ; 063 MG/3ML;PRN;INHALATION
     Route: 055
     Dates: start: 20110121, end: 20110212
  5. XOPENEX [Suspect]
     Indication: ASTHMA
     Dosage: 0.63 MG/ML;PRN;INHALATION ; 0.63 MG/ML;Q6H;INHALATION ; 063 MG/3ML;PRN;INHALATION
     Route: 055
     Dates: start: 20010101
  6. XOPENEX [Suspect]
     Indication: ASTHMA
     Dosage: 0.63 MG/ML;PRN;INHALATION ; 0.63 MG/ML;Q6H;INHALATION ; 063 MG/3ML;PRN;INHALATION
     Route: 055
     Dates: start: 20110213
  7. ASPIRIN [Concomitant]
  8. SPIRONOLACTONE [Concomitant]

REACTIONS (2)
  - BRONCHOPNEUMONIA [None]
  - CARDIAC FAILURE CONGESTIVE [None]
